FAERS Safety Report 6032930-1 (Version None)
Quarter: 2009Q1

REPORT INFORMATION
  Report Type: 
  Country: None (occurrence: None)
  Receive Date: 20090107
  Receipt Date: 20090107
  Transmission Date: 20090719
  Serious: No
  Sender: FDA-Public Use
  Company Number: None

PATIENT
  Age: 41 Year
  Sex: Female
  Weight: 56.6996 kg

DRUGS (3)
  1. ASPERCREME HEAT PAIN RELIEVING GEL CHATTEM [Suspect]
     Indication: BACK PAIN
     Dosage: CUTANEOUS
     Route: 003
  2. ASPERCREME HEAT PAIN RELIEVING GEL CHATTEM [Suspect]
     Indication: FALL
     Dosage: CUTANEOUS
     Route: 003
  3. ASPERCREME HEAT PAIN RELIEVING GEL CHATTEM [Suspect]
     Indication: PAIN IN EXTREMITY
     Dosage: CUTANEOUS
     Route: 003

REACTIONS (4)
  - ERYTHEMA [None]
  - PAIN [None]
  - SKIN BURNING SENSATION [None]
  - SUNBURN [None]
